FAERS Safety Report 4519137-1 (Version None)
Quarter: 2004Q4

REPORT INFORMATION
  Report Type: 
  Country: None (occurrence: None)
  Receive Date: 20041201
  Receipt Date: 20041115
  Transmission Date: 20050328
  Serious: No
  Sender: FDA-Public Use
  Company Number: 2004GB02743

PATIENT
  Age: 70 Year
  Sex: Male

DRUGS (5)
  1. OMEPRAZOLE [Suspect]
     Indication: HELICOBACTER INFECTION
     Dosage: 1 DF QD PO
     Route: 048
  2. RAMIPRIL [Concomitant]
  3. FUROSEMIDE [Concomitant]
  4. CAVEDILOL [Concomitant]
  5. ATORVASTATIN [Concomitant]

REACTIONS (10)
  - ABDOMINAL PAIN UPPER [None]
  - CHEST PAIN [None]
  - CONSTIPATION [None]
  - DIARRHOEA [None]
  - DIZZINESS [None]
  - DYSPNOEA [None]
  - HALLUCINATION [None]
  - INSOMNIA [None]
  - RESTLESSNESS [None]
  - SLEEP WALKING [None]
